FAERS Safety Report 7654068-X (Version None)
Quarter: 2011Q3

REPORT INFORMATION
  Report Type: 
  Country: None (occurrence: None)
  Receive Date: 20110802
  Receipt Date: 20110802
  Transmission Date: 20111222
  Serious: Yes (Hospitalization)
  Sender: FDA-Public Use
  Company Number: None

PATIENT
  Age: 71 Year
  Sex: Male
  Weight: 83.7 kg

DRUGS (1)
  1. WARFARIN SODIUM [Suspect]
     Indication: THROMBOSIS
     Dosage: 5 EVERY DAY PO
     Route: 048
     Dates: start: 20110714

REACTIONS (2)
  - INTERNATIONAL NORMALISED RATIO INCREASED [None]
  - CONTUSION [None]
